FAERS Safety Report 9549507 (Version 1)
Quarter: 2013Q3

REPORT INFORMATION
  Report Type: Spontaneous
  Country: US (occurrence: None)
  Receive Date: 20130719
  Receipt Date: 20130719
  Transmission Date: 20140515
  Serious: Yes (Hospitalization)
  Sender: FDA-Public Use
  Company Number: 2013BAX000273

PATIENT
  Age: 4 Year
  Sex: Male

DRUGS (10)
  1. CYCLOPHOSPHAMIDE [Suspect]
     Indication: B-CELL SMALL LYMPHOCYTIC LYMPHOMA
     Dosage: 1000 MG/M2 (810 MG, DAY 1 AND 28)
     Route: 042
     Dates: start: 20121029
  2. MERCAPTOPURINE [Suspect]
     Dosage: 60 MG/M2 (50 MG, DAY 1-28), ORAL
     Dates: start: 20121029, end: 20121030
  3. CYTARABINE [Suspect]
     Indication: ACUTE LYMPHOCYTIC LEUKAEMIA
     Dosage: 75 MG/M2 (60 MG, DAY 3-6, 10-13, 17-20, 24-27), INTRAVENOUS
     Route: 042
     Dates: start: 20121031
  4. CHLORHEXIDINE(CHLORHEXIDINE) [Concomitant]
  5. ENULOSE(LACTULOSE) [Concomitant]
  6. MIRALAX(MACROGOL) [Concomitant]
  7. SULFAMETHOXAZOLE [Concomitant]
  8. ZOFRAN(ODANSETRON) [Concomitant]
  9. HEPARIN(HEPARIN) [Concomitant]
  10. NORMAL SALINE(SODIUM CHLORIDE) [Concomitant]

REACTIONS (1)
  - Febrile neutropenia [None]
